FAERS Safety Report 18822374 (Version 1)
Quarter: 2021Q1

REPORT INFORMATION
  Report Type: Spontaneous
  Country: CN (occurrence: CN)
  Receive Date: 20210202
  Receipt Date: 20210202
  Transmission Date: 20210419
  Serious: Yes (Life-Threatening, Other)
  Sender: FDA-Public Use
  Company Number: CN-PFIZER INC-2021082041

PATIENT
  Age: 20 Month
  Sex: Male
  Weight: 13 kg

DRUGS (4)
  1. GLUCOSE [Concomitant]
     Active Substance: DEXTROSE
     Indication: PNEUMONIA
     Dosage: 50.000 ML, 2X/DAY
     Route: 041
     Dates: start: 20201129, end: 20201129
  2. GLUCOSE [Concomitant]
     Active Substance: DEXTROSE
     Dosage: 50.000 ML, 1X/DAY
     Route: 041
     Dates: start: 20201130, end: 20201130
  3. SOLU?MEDROL [Suspect]
     Active Substance: METHYLPREDNISOLONE SODIUM SUCCINATE
     Indication: PNEUMONIA
     Dosage: 25.000 MG, 1X/DAY
     Route: 041
     Dates: start: 20201206, end: 20201206
  4. BROMHEXINE HYDROCHLORIDE [Suspect]
     Active Substance: BROMHEXINE HYDROCHLORIDE
     Indication: PNEUMONIA
     Dosage: 1.500 MG, 2X/DAY
     Route: 041
     Dates: start: 20201129, end: 20201129

REACTIONS (3)
  - Hypersensitivity [Recovered/Resolved]
  - Asphyxia [Recovered/Resolved]
  - Shock [Recovered/Resolved]

NARRATIVE: CASE EVENT DATE: 20201207
